FAERS Safety Report 21040921 (Version 3)
Quarter: 2022Q3

REPORT INFORMATION
  Report Type: Report from Study
  Country: US (occurrence: US)
  Receive Date: 20220704
  Receipt Date: 20220711
  Transmission Date: 20221026
  Serious: Yes (Other)
  Sender: FDA-Public Use
  Company Number: US-ABBVIE-22K-163-4452451-00

PATIENT
  Age: 56 Year
  Sex: Female
  Weight: 86.260 kg

DRUGS (1)
  1. SYNTHROID [Suspect]
     Active Substance: LEVOTHYROXINE SODIUM
     Indication: Thyroid cancer
     Route: 048
     Dates: start: 201211

REACTIONS (2)
  - Rotator cuff syndrome [Unknown]
  - Product dispensing error [Unknown]

NARRATIVE: CASE EVENT DATE: 20171116
